FAERS Safety Report 9589920 (Version 1)
Quarter: 2013Q4

REPORT INFORMATION
  Report Type: Spontaneous
  Country: US (occurrence: US)
  Receive Date: 20131003
  Receipt Date: 20131003
  Transmission Date: 20140711
  Serious: No
  Sender: FDA-Public Use
  Company Number: US-AMGEN-USASP2012073384

PATIENT
  Age: 60 Year
  Sex: Female
  Weight: 67.12 kg

DRUGS (10)
  1. ENBREL [Suspect]
     Indication: RHEUMATOID ARTHRITIS
     Dosage: 50 MG, QWK
     Route: 058
  2. CALTRATE                           /00944201/ [Concomitant]
     Dosage: 600 MG, UNK
     Route: 048
  3. PLAQUENIL                          /00072602/ [Concomitant]
     Dosage: 200 MG, UNK
     Route: 048
  4. AUGMENTIN                          /00756801/ [Concomitant]
     Dosage: 500 MG, UNK
     Route: 048
  5. PRILOSEC                           /00661201/ [Concomitant]
     Dosage: 10 MG, UNK
     Route: 048
  6. FISH OIL [Concomitant]
     Dosage: 1000 MG, UNK
     Route: 048
  7. MULTIVITAMIN                       /07504101/ [Concomitant]
     Dosage: UNK
     Route: 048
  8. FOLIC ACID [Concomitant]
     Dosage: 20 MG, UNK
     Route: 048
  9. METHOTREXATE [Concomitant]
     Dosage: 1 G, UNK
     Route: 058
  10. GINKGO BILOBA [Concomitant]
     Dosage: 100 MG, UNK
     Route: 048

REACTIONS (1)
  - Sialoadenitis [Unknown]
